FAERS Safety Report 9531784 (Version 1)
Quarter: 2013Q3

REPORT INFORMATION
  Report Type: Spontaneous
  Country: US (occurrence: US)
  Receive Date: 20130918
  Receipt Date: 20130918
  Transmission Date: 20140515
  Serious: No
  Sender: FDA-Public Use
  Company Number: US-PFIZER INC-2013264475

PATIENT
  Age: 62 Year
  Sex: Female
  Weight: 68.93 kg

DRUGS (10)
  1. FLECTOR [Suspect]
     Indication: CARTILAGE INJURY
     Dosage: UNK
     Route: 061
     Dates: start: 20130908
  2. LEVOTHYROXINE [Concomitant]
     Dosage: UNK
  3. PREVACID [Concomitant]
     Dosage: UNK
  4. ASTEPRO [Concomitant]
     Dosage: UNK
  5. FLUTICASONE [Concomitant]
     Dosage: UNK
  6. VESICARE [Concomitant]
     Dosage: UNK
  7. LORATADINE [Concomitant]
     Dosage: UNK
  8. GLUCOSAMINE/CHONDROITIN [Concomitant]
     Dosage: UNK
  9. TRIPLE OMEGA [Concomitant]
     Dosage: UNK
  10. CITRACAL + D [Concomitant]
     Dosage: UNK

REACTIONS (2)
  - Oedema peripheral [Recovered/Resolved]
  - Pruritus [Recovered/Resolved]
